FAERS Safety Report 9006315 (Version 3)
Quarter: 2013Q1

REPORT INFORMATION
  Report Type: Spontaneous
  Country: US (occurrence: US)
  Receive Date: 20130110
  Receipt Date: 20130131
  Transmission Date: 20140127
  Serious: Yes (Hospitalization, Other)
  Sender: FDA-Public Use
  Company Number: US-BIOGENIDEC-2013BI000024

PATIENT
  Age: 64 Year
  Sex: Female

DRUGS (4)
  1. AVONEX [Suspect]
     Indication: MULTIPLE SCLEROSIS
     Route: 030
     Dates: start: 20121126, end: 20121217
  2. AVONEX [Suspect]
     Indication: MULTIPLE SCLEROSIS
  3. ANTIBIOTICS [Concomitant]
  4. TEGRETOL [Concomitant]

REACTIONS (8)
  - Pneumonia [Recovered/Resolved]
  - Fatigue [Unknown]
  - Asthenia [Unknown]
  - Idiopathic thrombocytopenic purpura [Recovered/Resolved]
  - Disorientation [Recovered/Resolved]
  - Local swelling [Recovered/Resolved]
  - Dehydration [Recovered/Resolved]
  - Swelling face [Recovered/Resolved]
